FAERS Safety Report 8867876 (Version 1)
Quarter: 2012Q4

REPORT INFORMATION
  Report Type: 
  Country: US (occurrence: US)
  Receive Date: 20121026
  Receipt Date: 20121026
  Transmission Date: 20130627
  Serious: No
  Sender: FDA-Public Use
  Company Number: US-AMGEN-USASP2012040843

PATIENT
  Sex: Female
  Weight: 65.76 kg

DRUGS (10)
  1. ENBREL [Suspect]
     Indication: PRODUCT USED FOR UNKNOWN INDICATION
     Dosage: 50 mg, qwk
     Route: 058
  2. MELOXICAM [Concomitant]
     Dosage: 7.5 mg, UNK
  3. CYMBALTA [Concomitant]
     Dosage: 20 mg, UNK
  4. FLEXERIL                           /00428402/ [Concomitant]
     Dosage: 10 mg, UNK
  5. AMLODIPIN                          /00972401/ [Concomitant]
     Dosage: 5 mg, UNK
  6. METHOTREXATE [Concomitant]
     Dosage: 2.5 mg, UNK
  7. NEURONTIN [Concomitant]
     Dosage: 100 mg, UNK
  8. METOPROLOL [Concomitant]
     Dosage: 100 mg, UNK
  9. CLONIDINE [Concomitant]
     Dosage: 0.2 mg, UNK
  10. FOLIC ACID [Concomitant]

REACTIONS (3)
  - Oedema peripheral [Unknown]
  - Feeling hot [Unknown]
  - Arthritis [Unknown]
